FAERS Safety Report 13106703 (Version 3)
Quarter: 2017Q1

REPORT INFORMATION
  Report Type: Spontaneous
  Country: JP (occurrence: JP)
  Receive Date: 20170111
  Receipt Date: 20170126
  Transmission Date: 20170428
  Serious: Yes (Other)
  Sender: FDA-Public Use
  Company Number: JP-009507513-1701JPN003272

PATIENT
  Age: 85 Year
  Sex: Male
  Weight: 54 kg

DRUGS (14)
  1. CANCIDAS [Suspect]
     Active Substance: CASPOFUNGIN ACETATE
     Indication: BRONCHOPULMONARY ASPERGILLOSIS
     Dosage: 70 MG, QD
     Route: 041
     Dates: start: 20161205, end: 20161205
  2. LIMAPROST ALFADEX [Concomitant]
     Active Substance: LIMAPROST
     Indication: LUMBAR SPINAL STENOSIS
     Dosage: 5 MICROGRAM, TID
     Route: 048
     Dates: start: 20110630
  3. METHYCOBAL [Concomitant]
     Active Substance: METHYLCOBALAMIN
     Indication: NEUROPATHY PERIPHERAL
     Dosage: 500 MICROGRAM, TID
     Route: 048
     Dates: start: 20150316
  4. FUROSEMIDE. [Concomitant]
     Active Substance: FUROSEMIDE
     Dosage: 20 MG, QD
     Route: 051
     Dates: start: 20161201, end: 20161206
  5. PREDONINE [Concomitant]
     Active Substance: PREDNISOLONE
     Indication: DERMATOMYOSITIS
     Dosage: 0.2 MG, QD
     Route: 048
     Dates: start: 20070706
  6. AMBROXOL HYDROCHLORIDE [Concomitant]
     Active Substance: AMBROXOL HYDROCHLORIDE
     Indication: SPUTUM RETENTION
     Dosage: 15 MG, TID
     Route: 048
     Dates: start: 20160830
  7. NESINA [Concomitant]
     Active Substance: ALOGLIPTIN BENZOATE
     Indication: DIABETES MELLITUS
     Dosage: 25 MG, QD
     Route: 048
     Dates: start: 20131213
  8. PRAVASTATIN SODIUM. [Concomitant]
     Active Substance: PRAVASTATIN SODIUM
     Indication: HYPERLIPIDAEMIA
     Dosage: 10 MG, BID
     Route: 048
     Dates: start: 20140617
  9. MEROPENEM. [Concomitant]
     Active Substance: MEROPENEM
     Indication: INTERSTITIAL LUNG DISEASE
     Dosage: 1 G, TID
     Route: 041
     Dates: start: 20161130
  10. NIZATIDINE. [Concomitant]
     Active Substance: NIZATIDINE
     Indication: GASTRITIS
     Dosage: 150 MG, BID
     Route: 048
     Dates: start: 20110511
  11. SUREPOST [Concomitant]
     Active Substance: REPAGLINIDE
     Indication: DIABETES MELLITUS
     Dosage: 0.5 MG, BID
     Route: 048
     Dates: start: 20150803, end: 20161213
  12. URSODIOL. [Concomitant]
     Active Substance: URSODIOL
     Indication: GASTRITIS
     Dosage: 100 MG, TID
     Route: 048
     Dates: start: 20121109
  13. ASVERIN (TIPEPIDINE HIBENZATE) [Concomitant]
     Active Substance: TIPEPIDINE HIBENZATE
     Indication: INTERSTITIAL LUNG DISEASE
     Dosage: 20 MG, TID
     Route: 048
     Dates: start: 20120803
  14. CANCIDAS [Suspect]
     Active Substance: CASPOFUNGIN ACETATE
     Indication: BRONCHOPULMONARY ASPERGILLOSIS
     Dosage: 50 MG, QD
     Route: 041
     Dates: start: 20161206, end: 20161213

REACTIONS (3)
  - Pyrexia [Recovered/Resolved]
  - Drug ineffective [Unknown]
  - Interstitial lung disease [Not Recovered/Not Resolved]

NARRATIVE: CASE EVENT DATE: 20161207
